FAERS Safety Report 5578345-1 (Version None)
Quarter: 2007Q4

REPORT INFORMATION
  Report Type: 
  Country: None (occurrence: None)
  Receive Date: 20071231
  Receipt Date: 20071228
  Transmission Date: 20080405
  Serious: Yes (Hospitalization)
  Sender: FDA-Public Use
  Company Number: US-BRISTOL-MYERS SQUIBB COMPANY-14020846

PATIENT
  Age: 60 Year
  Sex: Female
  Weight: 74 kg

DRUGS (4)
  1. CETUXIMAB [Suspect]
     Indication: NON-SMALL CELL LUNG CANCER
     Dosage: FIRST CYCLE 400 MG/M2 OVER 2 HOURS
     Route: 042
     Dates: start: 20071211, end: 20071211
  2. CARBOPLATIN [Suspect]
     Indication: NON-SMALL CELL LUNG CANCER
     Dosage: DOSAGE FORM = AUC 6
     Route: 042
     Dates: start: 20071211, end: 20071211
  3. PACLITAXEL [Suspect]
     Indication: NON-SMALL CELL LUNG CANCER
     Route: 042
     Dates: start: 20071211, end: 20071211
  4. BEVACIZUMAB [Suspect]
     Indication: NON-SMALL CELL LUNG CANCER
     Route: 042
     Dates: start: 20071211, end: 20071211

REACTIONS (4)
  - DEHYDRATION [None]
  - NAUSEA [None]
  - NEUTROPHIL COUNT ABNORMAL [None]
  - SMALL INTESTINAL OBSTRUCTION [None]
